FAERS Safety Report 23295072 (Version 1)
Quarter: 2023Q4

REPORT INFORMATION
  Report Type: Spontaneous
  Country: KR (occurrence: KR)
  Receive Date: 20231213
  Receipt Date: 20231213
  Transmission Date: 20240110
  Serious: Yes (Hospitalization, Other)
  Sender: FDA-Public Use
  Company Number: KR-CPL-003845

PATIENT
  Age: 63 Year
  Sex: Male

DRUGS (3)
  1. PREGABALIN [Suspect]
     Active Substance: PREGABALIN
     Indication: Uraemic pruritus
  2. ROSUVASTATIN [Concomitant]
     Active Substance: ROSUVASTATIN
  3. PREGABALIN [Suspect]
     Active Substance: PREGABALIN
     Indication: Uraemic pruritus
     Dosage: ADDED 75MG OF PREGABALIN TO HIS DAILY DOSE, FOR A TOTAL OF 125 MG PER DAY

REACTIONS (1)
  - Rhabdomyolysis [Recovered/Resolved]
